FAERS Safety Report 8217795-1 (Version None)
Quarter: 2012Q1

REPORT INFORMATION
  Report Type: 
  Country: None (occurrence: None)
  Receive Date: 20120319
  Receipt Date: 20120307
  Transmission Date: 20120608
  Serious: Yes (Other)
  Sender: FDA-Public Use
  Company Number: US-JNJFOC-20120304540

PATIENT
  Sex: Female

DRUGS (3)
  1. ENBREL [Suspect]
     Indication: PSORIASIS
     Route: 065
     Dates: start: 20060101
  2. REMICADE [Suspect]
     Indication: PSORIASIS
     Route: 042
     Dates: start: 20060101, end: 20110101
  3. ADALIMUMAB [Concomitant]
     Route: 065

REACTIONS (4)
  - INFECTION [None]
  - ADVERSE EVENT [None]
  - INFUSION RELATED REACTION [None]
  - ANAPHYLACTIC REACTION [None]
